FAERS Safety Report 13813703 (Version 2)
Quarter: 2017Q3

REPORT INFORMATION
  Report Type: Report from Study
  Country: DE (occurrence: DE)
  Receive Date: 20170731
  Receipt Date: 20170814
  Transmission Date: 20171127
  Serious: Yes (Hospitalization)
  Sender: FDA-Public Use
  Company Number: DE-BRISTOL-MYERS SQUIBB COMPANY-BMS-2017-066053

PATIENT
  Age: 74 Year
  Sex: Male
  Weight: 70 kg

DRUGS (2)
  1. NIVOLUMAB [Suspect]
     Active Substance: NIVOLUMAB
     Indication: GASTRIC CANCER
     Dosage: 1 MG/KG, Q3WK
     Route: 042
     Dates: start: 20170619
  2. IPILIMUMAB [Suspect]
     Active Substance: IPILIMUMAB
     Indication: GASTRIC CANCER
     Dosage: 3 MG/KG, Q3WK
     Route: 042
     Dates: start: 20170619

REACTIONS (1)
  - Hyponatraemia [Recovering/Resolving]

NARRATIVE: CASE EVENT DATE: 20170722
